FAERS Safety Report 19196280 (Version 2)
Quarter: 2021Q2

REPORT INFORMATION
  Report Type: Spontaneous
  Country: US (occurrence: US)
  Receive Date: 20210429
  Receipt Date: 20210519
  Transmission Date: 20210717
  Serious: No
  Sender: FDA-Public Use
  Company Number: US-ASCEND THERAPEUTICS US, LLC-2110015

PATIENT
  Age: 69 Year
  Sex: Female
  Weight: 42.64 kg

DRUGS (3)
  1. BINOSTO [Suspect]
     Active Substance: ALENDRONATE SODIUM
     Indication: OSTEOPOROSIS
     Route: 048
     Dates: start: 20210404
  2. BINOSTO [Suspect]
     Active Substance: ALENDRONATE SODIUM
     Route: 048
     Dates: start: 20210404
  3. TOPROL XL [Concomitant]
     Active Substance: METOPROLOL SUCCINATE
     Route: 065
     Dates: start: 2018

REACTIONS (4)
  - Headache [Recovered/Resolved]
  - Heart rate irregular [Recovering/Resolving]
  - Pruritus [Recovering/Resolving]
  - Diarrhoea [Recovered/Resolved]

NARRATIVE: CASE EVENT DATE: 202104
